FAERS Safety Report 21050664 (Version 2)
Quarter: 2022Q3

REPORT INFORMATION
  Report Type: Report from Study
  Country: US (occurrence: US)
  Receive Date: 20220707
  Receipt Date: 20220928
  Transmission Date: 20221026
  Serious: No
  Sender: FDA-Public Use
  Company Number: US-NOVARTISTESTPH-NVSC2022US153867

PATIENT
  Sex: Female

DRUGS (3)
  1. COSENTYX [Suspect]
     Active Substance: SECUKINUMAB
     Indication: Psoriasis
     Dosage: UNK
     Route: 058
  2. COSENTYX [Suspect]
     Active Substance: SECUKINUMAB
     Dosage: UNK (BACK IN)
     Route: 058
     Dates: start: 2020
  3. COSENTYX [Suspect]
     Active Substance: SECUKINUMAB
     Dosage: UNK, PRN (AS NEEDED)
     Route: 058

REACTIONS (2)
  - Condition aggravated [Unknown]
  - Inappropriate schedule of product administration [Unknown]
